FAERS Safety Report 9037702 (Version 1)
Quarter: 2013Q1

REPORT INFORMATION
  Report Type: Report from Study
  Country: US (occurrence: US)
  Receive Date: 20130129
  Receipt Date: 20130129
  Transmission Date: 20140127
  Serious: No
  Sender: FDA-Public Use
  Company Number: US-ABBOTT-12P-163-0895783-00

PATIENT
  Age: 65 Year
  Sex: Female

DRUGS (12)
  1. HUMIRA 40 MG/0.8 ML PEN [Suspect]
     Indication: CROHN^S DISEASE
     Dates: start: 20111207
  2. ENTOCORT [Concomitant]
     Indication: CROHN^S DISEASE
  3. TENORMIN GENERIC [Concomitant]
     Indication: BLOOD PRESSURE
     Dosage: AT BEDTIME
  4. NEURONTIN GENERIC [Concomitant]
     Indication: MIGRAINE
  5. PRILOSEC OTC [Concomitant]
     Indication: GASTROOESOPHAGEAL REFLUX DISEASE
  6. CARAFATE [Concomitant]
     Indication: GASTROOESOPHAGEAL REFLUX DISEASE
  7. OMEGA 3 [Concomitant]
     Indication: SUPPLEMENTATION THERAPY
  8. VITAMIN C [Concomitant]
     Indication: VITAMIN SUPPLEMENTATION
  9. MULTIVITAMINS [Concomitant]
     Indication: PRODUCT USED FOR UNKNOWN INDICATION
     Dosage: ONE DAILY
  10. VITAMIN E [Concomitant]
     Indication: PRODUCT USED FOR UNKNOWN INDICATION
  11. CALCIUM WITH D3 [Concomitant]
     Indication: MINERAL SUPPLEMENTATION
  12. BABY ASA [Concomitant]
     Indication: PROPHYLAXIS

REACTIONS (3)
  - Infection [Recovered/Resolved]
  - Dysuria [Recovered/Resolved]
  - Pollakiuria [Recovered/Resolved]
